FAERS Safety Report 26122061 (Version 1)
Quarter: 2025Q4

REPORT INFORMATION
  Report Type: Spontaneous
  Country: US (occurrence: US)
  Receive Date: 20251204
  Receipt Date: 20251204
  Transmission Date: 20260117
  Serious: No
  Sender: BAYER HEALTHCARE PHARMACEUTICALS INC.
  Company Number: US-BAYER-2025A159328

PATIENT
  Age: 77 Year
  Sex: Male

DRUGS (1)
  1. ESTRADIOL [Suspect]
     Active Substance: ESTRADIOL
     Indication: Bone density abnormal
     Route: 062

REACTIONS (3)
  - Product use in unapproved indication [None]
  - Product prescribing issue [None]
  - Drug ineffective for unapproved indication [None]
